FAERS Safety Report 9950826 (Version 2)
Quarter: 2014Q1

REPORT INFORMATION
  Report Type: Spontaneous
  Country: US (occurrence: US)
  Receive Date: 20140304
  Receipt Date: 20140304
  Transmission Date: 20141002
  Serious: Yes (Other)
  Sender: FDA-Public Use
  Company Number: US-ABBVIE-13P-163-1059080-00

PATIENT
  Age: 63 Year
  Sex: Male
  Weight: 61.29 kg

DRUGS (2)
  1. HUMIRA [Suspect]
     Indication: CROHN^S DISEASE
  2. METHOTREXATE [Concomitant]
     Indication: CROHN^S DISEASE

REACTIONS (3)
  - Injection site abscess [Not Recovered/Not Resolved]
  - Product quality issue [Unknown]
  - Crohn^s disease [Unknown]
